FAERS Safety Report 5475555-9 (Version None)
Quarter: 2007Q4

REPORT INFORMATION
  Report Type: 
  Country: None (occurrence: None)
  Receive Date: 20071003
  Receipt Date: 20061031
  Transmission Date: 20080405
  Serious: No
  Sender: FDA-Public Use
  Company Number: US-KINGPHARMUSA00001-K200601366

PATIENT

DRUGS (14)
  1. SONATA [Suspect]
     Indication: INSOMNIA
     Route: 048
  2. ACIPHEX [Concomitant]
  3. ATENOLOL [Concomitant]
  4. AVAPRO [Concomitant]
  5. FOLIC ACID [Concomitant]
  6. FUROSEMIDE [Concomitant]
  7. K-DUR 10 [Concomitant]
  8. CALTRATE                           /00108001/ [Concomitant]
  9. PLAVIX [Concomitant]
  10. LIPITOR [Concomitant]
  11. CLONIDINE [Concomitant]
  12. MIACALCIN [Concomitant]
  13. XANAX [Concomitant]
  14. AMBIEN [Concomitant]

REACTIONS (1)
  - DRUG INEFFECTIVE [None]
